FAERS Safety Report 7800336 (Version 2)
Quarter: 2018Q4

REPORT INFORMATION
  Report Type: Spontaneous
  Country: FR (occurrence: FR)
  Receive Date: 20110204
  Receipt Date: 20181008
  Transmission Date: 20190205
  Serious: Yes (Death, Hospitalization)
  Sender: FDA-Public Use
  Company Number: FR-PFIZER INC-2011022557

PATIENT
  Age: 85 Year
  Sex: Female
  Weight: 30 kg

DRUGS (12)
  1. SPIRONOLACTONE. [Concomitant]
     Active Substance: SPIRONOLACTONE
  2. CORDARONE [Concomitant]
     Active Substance: AMIODARONE HYDROCHLORIDE
  3. MIRTAZAPINE. [Concomitant]
     Active Substance: MIRTAZAPINE
  4. LASILIX [Concomitant]
     Active Substance: FUROSEMIDE
  5. FUMAFER [Concomitant]
     Active Substance: FERROUS FUMARATE
  6. PREVISCAN (FLUINDIONE) [Concomitant]
     Active Substance: FLUINDIONE
  7. TEMERIT [Concomitant]
     Active Substance: NEBIVOLOL
  8. CETORNAN [Concomitant]
  9. ZYVOXID [Suspect]
     Active Substance: LINEZOLID
     Dosage: 600 MG, 2X/DAY
     Route: 048
     Dates: start: 20110110, end: 20110117
  10. CONTRAMAL [Suspect]
     Active Substance: TRAMADOL HYDROCHLORIDE
     Dosage: 100 MG, 2X/DAY
     Route: 048
     Dates: start: 20110115, end: 20110117
  11. DOLIPRANE [Concomitant]
     Active Substance: ACETAMINOPHEN
  12. LYRICA [Suspect]
     Active Substance: PREGABALIN
     Dosage: 25 MG, 2X/DAY
     Route: 048
     Dates: start: 20110115, end: 20110117

REACTIONS (4)
  - Status epilepticus [Fatal]
  - Urosepsis [Unknown]
  - Dehydration [Unknown]
  - Cardiac failure [Unknown]

NARRATIVE: CASE EVENT DATE: 20110117
